FAERS Safety Report 7419766-1 (Version None)
Quarter: 2011Q2

REPORT INFORMATION
  Report Type: 
  Country: None (occurrence: None)
  Receive Date: 20110413
  Receipt Date: 20110413
  Transmission Date: 20111010
  Serious: Yes (Other)
  Sender: FDA-Public Use
  Company Number: None

PATIENT
  Sex: Female
  Weight: 68.0396 kg

DRUGS (1)
  1. FLUOROURACIL [Suspect]
     Dosage: APPLY TO AFFECTED FACE + CHEST AT BEDTIME
     Dates: start: 20100206, end: 20100301

REACTIONS (7)
  - CHOKING [None]
  - DYSPNOEA [None]
  - BURNING SENSATION [None]
  - SWELLING FACE [None]
  - SWELLING [None]
  - ERYTHEMA [None]
  - INFLAMMATION [None]
